FAERS Safety Report 15851710 (Version 1)
Quarter: 2019Q1

REPORT INFORMATION
  Report Type: Spontaneous
  Country: US (occurrence: US)
  Receive Date: 20190122
  Receipt Date: 20190122
  Transmission Date: 20190417
  Serious: No
  Sender: FDA-Public Use
  Company Number: US-SERB S.A.S.-2061542

PATIENT
  Age: 55 Year
  Sex: Male

DRUGS (4)
  1. CYANOKIT [Suspect]
     Active Substance: HYDROXOCOBALAMIN
     Indication: SEPTIC SHOCK
     Route: 042
  2. NOREPINEPHRINE. [Concomitant]
     Active Substance: NOREPINEPHRINE
     Route: 042
  3. VASOPRESSIN. [Concomitant]
     Active Substance: VASOPRESSIN
     Route: 042
  4. EPINEPHRINE. [Concomitant]
     Active Substance: EPINEPHRINE
     Route: 042

REACTIONS (1)
  - Product use in unapproved indication [Recovered/Resolved]
